FAERS Safety Report 8515732-3 (Version None)
Quarter: 2012Q3

REPORT INFORMATION
  Report Type: 
  Country: None (occurrence: None)
  Receive Date: 20120717
  Receipt Date: 20120713
  Transmission Date: 20120928
  Serious: Yes (Other)
  Sender: FDA-Public Use
  Company Number: PHFR2011GB03164

PATIENT
  Sex: Male

DRUGS (5)
  1. SULPIRIDE [Concomitant]
     Dosage: 800 MG/DAY
  2. VALPROATE SODIUM [Concomitant]
     Dosage: 600 MG/DAY
     Route: 048
  3. FLUOXETINE HCL [Concomitant]
     Indication: ANTIDEPRESSANT THERAPY
     Dosage: 40 MG/DAY
     Route: 048
  4. CLOZARIL [Suspect]
     Indication: SCHIZOPHRENIA
     Dosage: 750 MG, UNK
     Route: 048
     Dates: start: 20030422
  5. LANSOPRAZOLE [Concomitant]
     Indication: ANTACID THERAPY
     Dosage: 30 MG/DAY
     Route: 048

REACTIONS (3)
  - DIZZINESS [None]
  - DIFFERENTIAL WHITE BLOOD CELL COUNT ABNORMAL [None]
  - ORTHOSTATIC HYPOTENSION [None]
